FAERS Safety Report 10163205 (Version 3)
Quarter: 2014Q2

REPORT INFORMATION
  Report Type: Report from Study
  Country: JP (occurrence: JP)
  Receive Date: 20140509
  Receipt Date: 20140522
  Transmission Date: 20141212
  Serious: Yes (Hospitalization)
  Sender: FDA-Public Use
  Company Number: PHHO2013JP014373

PATIENT
  Age: 38 Year
  Sex: Male
  Weight: 57 kg

DRUGS (15)
  1. LDK378 [Suspect]
     Indication: NON-SMALL CELL LUNG CANCER
     Dosage: 750 MG, DAILY
     Route: 048
     Dates: start: 20130215, end: 20130312
  2. LDK378 [Suspect]
     Dosage: 600 MG, DAILY
     Route: 048
     Dates: start: 20130627, end: 20131031
  3. LDK378 [Suspect]
     Dosage: 450 MG, DAILY
     Route: 048
     Dates: start: 20131115, end: 20140118
  4. LDK378 [Suspect]
     Dosage: 450 MG DAILY
     Route: 048
     Dates: start: 20140209, end: 20140503
  5. DECADRON [Concomitant]
     Indication: PROPHYLAXIS OF NAUSEA AND VOMITING
     Dosage: UNK
     Route: 048
     Dates: start: 20131002
  6. CODEINE [Concomitant]
     Indication: COUGH
     Dosage: UNK
     Route: 048
     Dates: start: 20111220
  7. BROTIZOLAM [Concomitant]
     Indication: INSOMNIA
     Dosage: UNK
     Route: 048
     Dates: start: 20130127
  8. NAIXAN [Concomitant]
     Indication: PYREXIA
     Dosage: UNK
     Dates: start: 20130207
  9. LANSOPRAZOLE [Concomitant]
     Indication: PROPHYLAXIS AGAINST GASTROINTESTINAL ULCER
     Dosage: UNK
     Dates: start: 20120426
  10. MAGLAX [Concomitant]
     Indication: CONSTIPATION
     Dosage: UNK
     Route: 048
     Dates: start: 20110727
  11. OPSO [Concomitant]
     Indication: COUGH
     Dosage: UNK
     Route: 048
     Dates: start: 20130425
  12. ROHTO C CUBE [Concomitant]
     Indication: DRY EYE
     Route: 031
  13. LOPERAMIDE [Concomitant]
     Indication: DIARRHOEA
     Dosage: UNK
     Route: 048
     Dates: start: 20130220
  14. LAC-B [Concomitant]
     Indication: DIARRHOEA
     Dosage: UNK
     Route: 048
     Dates: start: 20130221
  15. ETIZOLAM [Concomitant]
     Indication: INSOMNIA
     Dosage: UNK
     Route: 048
     Dates: start: 20130227

REACTIONS (1)
  - Pleural infection [Not Recovered/Not Resolved]
